FAERS Safety Report 8407413-1 (Version None)
Quarter: 2012Q2

REPORT INFORMATION
  Report Type: 
  Country: None (occurrence: None)
  Receive Date: 20120604
  Receipt Date: 20120524
  Transmission Date: 20120825
  Serious: Yes (Other)
  Sender: FDA-Public Use
  Company Number: JP-ASTRAZENECA-2012SE36068

PATIENT
  Age: 91 Year
  Sex: Female

DRUGS (11)
  1. LANSOPRAZOLE [Concomitant]
     Route: 048
  2. CALFINA [Concomitant]
     Route: 048
  3. GOODMIN [Concomitant]
     Route: 048
  4. TETRAMIDE [Concomitant]
     Route: 048
  5. MAGMITT [Concomitant]
     Route: 048
  6. AMLODIPINE [Concomitant]
     Route: 048
  7. CYANOCOBALAMIN [Concomitant]
     Route: 048
  8. ASPARA-CA [Concomitant]
     Route: 048
  9. SELBEX [Concomitant]
     Route: 048
  10. SEROQUEL [Suspect]
     Route: 048
     Dates: start: 20120402, end: 20120406
  11. AMAZOLON [Concomitant]
     Route: 048

REACTIONS (1)
  - HYPERNATRAEMIA [None]
